FAERS Safety Report 24789975 (Version 1)
Quarter: 2024Q4

REPORT INFORMATION
  Report Type: Spontaneous
  Country: US (occurrence: US)
  Receive Date: 20241230
  Receipt Date: 20241230
  Transmission Date: 20250114
  Serious: Yes (Other)
  Sender: ROCHE
  Company Number: US-ROCHE-10000164970

PATIENT
  Age: 23 Year
  Sex: Male

DRUGS (1)
  1. RITUXIMAB [Suspect]
     Active Substance: RITUXIMAB
     Indication: Immune thrombocytopenia
     Route: 065

REACTIONS (3)
  - Pneumonia pseudomonal [Unknown]
  - Pneumonia haemophilus [Unknown]
  - Candida infection [Unknown]
